FAERS Safety Report 9444635 (Version 1)
Quarter: 2013Q3

REPORT INFORMATION
  Report Type: Spontaneous
  Country: US (occurrence: None)
  Receive Date: 20130806
  Receipt Date: 20130806
  Transmission Date: 20140515
  Serious: Yes (Other)
  Sender: FDA-Public Use
  Company Number: None

PATIENT
  Age: 32 Month
  Sex: Male
  Weight: 145.61 kg

DRUGS (4)
  1. QNSAL [Suspect]
     Indication: RHINORRHOEA
     Dates: start: 20130720, end: 20130721
  2. CHILDRENS MULTIVITAMIN [Concomitant]
  3. QVAR [Concomitant]
  4. NASONEX [Concomitant]

REACTIONS (5)
  - Psychomotor hyperactivity [None]
  - Aggression [None]
  - Oppositional defiant disorder [None]
  - Aggression [None]
  - Vomiting [None]
